FAERS Safety Report 9215150 (Version 2)
Quarter: 2013Q2

REPORT INFORMATION
  Report Type: Report from Study
  Country: HU (occurrence: HU)
  Receive Date: 20130405
  Receipt Date: 20130430
  Transmission Date: 20140414
  Serious: Yes (Hospitalization)
  Sender: FDA-Public Use
  Company Number: HU-ABBOTT-13P-076-1070878-00

PATIENT
  Age: 49 Year
  Sex: Male
  Weight: 105 kg

DRUGS (5)
  1. HUMIRA [Suspect]
     Indication: ANKYLOSING SPONDYLITIS
     Dosage: BIWEEKLY
     Route: 058
     Dates: start: 20120629
  2. DETRALEX [Concomitant]
     Indication: PRODUCT USED FOR UNKNOWN INDICATION
  3. NORTIVAN [Concomitant]
     Indication: PRODUCT USED FOR UNKNOWN INDICATION
  4. GELBRA [Concomitant]
     Indication: PROPHYLAXIS
  5. GELBRA [Concomitant]
     Indication: GASTRIC DISORDER

REACTIONS (6)
  - White blood cell count increased [Recovered/Resolved with Sequelae]
  - Syncope [Recovered/Resolved with Sequelae]
  - Vomiting [Recovered/Resolved with Sequelae]
  - Nausea [Recovered/Resolved with Sequelae]
  - C-reactive protein increased [Recovered/Resolved with Sequelae]
  - Pharyngitis [Recovered/Resolved with Sequelae]
